FAERS Safety Report 12839891 (Version 1)
Quarter: 2016Q4

REPORT INFORMATION
  Report Type: Spontaneous
  Country: US (occurrence: US)
  Receive Date: 20161011
  Receipt Date: 20161011
  Transmission Date: 20170207
  Serious: Yes (Other)
  Sender: FDA-Public Use
  Company Number: None

PATIENT
  Age: 49 Year
  Sex: Female
  Weight: 4.05 kg

DRUGS (17)
  1. VITAMIN B12 [Concomitant]
     Active Substance: CYANOCOBALAMIN
  2. HAIR SKIN AND NAILS BLEND [Concomitant]
  3. VENLAFAXINE HCL [Suspect]
     Active Substance: VENLAFAXINE HYDROCHLORIDE
     Indication: DEPRESSION
     Dosage: ?          QUANTITY:1 CAPSULE(S);?
     Route: 048
     Dates: start: 20160815, end: 20161005
  4. TRAZODONE [Concomitant]
     Active Substance: TRAZODONE HYDROCHLORIDE
  5. C [Concomitant]
  6. ATIVAN [Concomitant]
     Active Substance: LORAZEPAM
  7. FLUCONAZOLE. [Concomitant]
     Active Substance: FLUCONAZOLE
  8. VITAMIN D3 [Concomitant]
     Active Substance: CHOLECALCIFEROL
  9. TURMERIC [Concomitant]
     Active Substance: TURMERIC
  10. ESOMEPRAZOLE [Concomitant]
     Active Substance: ESOMEPRAZOLE
  11. TESTOSTERONE/ESTROGEN [Concomitant]
  12. MULTIVITAMIN [Concomitant]
     Active Substance: VITAMINS
  13. OSTEO BIOFLEX [Concomitant]
  14. CALCIUM [Concomitant]
     Active Substance: CALCIUM
  15. BCOMPLEX [Concomitant]
  16. VENLAFAXINE HCL [Suspect]
     Active Substance: VENLAFAXINE HYDROCHLORIDE
     Indication: ANXIETY
     Dosage: ?          QUANTITY:1 CAPSULE(S);?
     Route: 048
     Dates: start: 20160815, end: 20161005
  17. WELLBUTRIN [Concomitant]
     Active Substance: BUPROPION HYDROCHLORIDE

REACTIONS (16)
  - Withdrawal syndrome [None]
  - Hypoaesthesia oral [None]
  - Fatigue [None]
  - Pallor [None]
  - Depression [None]
  - Nausea [None]
  - Neck pain [None]
  - Ocular hyperaemia [None]
  - Tinnitus [None]
  - Facial paralysis [None]
  - Paraesthesia oral [None]
  - Vision blurred [None]
  - Visual impairment [None]
  - Headache [None]
  - Photopsia [None]
  - Musculoskeletal stiffness [None]

NARRATIVE: CASE EVENT DATE: 20160916
